FAERS Safety Report 4808678-5 (Version None)
Quarter: 2005Q4

REPORT INFORMATION
  Report Type: 
  Country: None (occurrence: None)
  Receive Date: 20051021
  Receipt Date: 20051021
  Transmission Date: 20060501
  Serious: Yes (Hospitalization)
  Sender: FDA-Public Use
  Company Number: None

PATIENT
  Age: 52 Year
  Sex: Male
  Weight: 149.687 kg

DRUGS (1)
  1. WARFARIN   10MG [Suspect]
     Indication: ATRIAL FIBRILLATION
     Dosage: 10MG   DAILY  PO
     Route: 048
     Dates: start: 20030203, end: 20051020

REACTIONS (23)
  - BLOOD URINE PRESENT [None]
  - CANDIDIASIS [None]
  - CARDIAC FAILURE CONGESTIVE [None]
  - CELLULITIS STAPHYLOCOCCAL [None]
  - COLITIS [None]
  - CONDITION AGGRAVATED [None]
  - CONTUSION [None]
  - DEFAECATION URGENCY [None]
  - DRUG TOXICITY [None]
  - DYSURIA [None]
  - EPISTAXIS [None]
  - FATIGUE [None]
  - FLATULENCE [None]
  - HAEMATOCHEZIA [None]
  - HAEMOGLOBIN DECREASED [None]
  - INTERNATIONAL NORMALISED RATIO INCREASED [None]
  - LEUKOCYTOCLASTIC VASCULITIS [None]
  - PAIN [None]
  - POLLAKIURIA [None]
  - POLYP [None]
  - RECTAL HAEMORRHAGE [None]
  - SCROTAL SWELLING [None]
  - URINE FLOW DECREASED [None]
